FAERS Safety Report 13456495 (Version 4)
Quarter: 2020Q3

REPORT INFORMATION
  Report Type: Spontaneous
  Country: FR (occurrence: FR)
  Receive Date: 20170418
  Receipt Date: 20200707
  Transmission Date: 20201102
  Serious: Yes (Hospitalization, Congenital Anomaly, Other)
  Sender: FDA-Public Use
  Company Number: FR-ABBVIE-17P-056-1905990-00

PATIENT
  Sex: Male

DRUGS (2)
  1. DEPAKINE CHRONO [Suspect]
     Active Substance: VALPROATE SODIUM
     Indication: PRODUCT USED FOR UNKNOWN INDICATION
  2. DEPAKINE CHRONO [Suspect]
     Active Substance: VALPROATE SODIUM
     Indication: MATERNAL EXPOSURE TIMING UNSPECIFIED
     Route: 064
     Dates: start: 19970630, end: 19980330

REACTIONS (46)
  - Speech disorder [Unknown]
  - Autism spectrum disorder [Not Recovered/Not Resolved]
  - Back pain [Recovered/Resolved]
  - Pyrexia [Unknown]
  - Diarrhoea [Unknown]
  - Bronchitis [Recovered/Resolved]
  - Hand fracture [Unknown]
  - Varicella [Unknown]
  - Pectus excavatum [Unknown]
  - Dyspnoea [Recovered/Resolved]
  - Ear infection [Recovered/Resolved]
  - Altered visual depth perception [Unknown]
  - Nasal septum deviation [Unknown]
  - Clinodactyly [Unknown]
  - Syndactyly [Unknown]
  - Lung disorder [Recovered/Resolved]
  - Laryngitis [Recovered/Resolved]
  - Lung disorder [Unknown]
  - Laryngitis [Recovered/Resolved]
  - Neurodevelopmental disorder [Not Recovered/Not Resolved]
  - Vomiting [Unknown]
  - Chloasma [Unknown]
  - Arachnodactyly [Unknown]
  - Laryngitis [Unknown]
  - Post procedural haemorrhage [Recovered/Resolved]
  - Tracheobronchitis [Recovered/Resolved]
  - Sluggishness [Unknown]
  - Lung disorder [Unknown]
  - Partial seizures [Unknown]
  - Adenoidectomy [Unknown]
  - Upper respiratory tract infection [Unknown]
  - Foetal exposure during pregnancy [Unknown]
  - Hyperventilation [Unknown]
  - Intellectual disability [Unknown]
  - Enuresis [Recovered/Resolved]
  - Talipes [Recovered/Resolved]
  - Eczema [Unknown]
  - Sinusitis [Unknown]
  - Hypotonia [Unknown]
  - Asthmatic crisis [Recovered/Resolved]
  - Laryngitis [Recovered/Resolved]
  - Dysmorphism [Unknown]
  - Speech disorder developmental [Unknown]
  - Autism spectrum disorder [Not Recovered/Not Resolved]
  - Rhinitis [Recovered/Resolved]
  - Speech disorder [Unknown]

NARRATIVE: CASE EVENT DATE: 19991102
